FAERS Safety Report 15378947 (Version 1)
Quarter: 2018Q3

REPORT INFORMATION
  Report Type: Spontaneous
  Country: US (occurrence: US)
  Receive Date: 20180906
  Receipt Date: 20180906
  Transmission Date: 20181010
  Serious: No
  Sender: FDA-Public Use
  Company Number: None

PATIENT
  Age: 66 Year
  Sex: Female
  Weight: 52.62 kg

DRUGS (2)
  1. ZOLEDRONIC ACID 5MG/100ML [Suspect]
     Active Substance: ZOLEDRONIC ACID
     Dosage: ?          OTHER FREQUENCY:15 MNS EVERY YEAR ;?
     Route: 042
     Dates: start: 201709
  2. HUMIRA [Suspect]
     Active Substance: ADALIMUMAB
     Dosage: ?          OTHER FREQUENCY:EVERY  2 WKS ;?
     Route: 058
     Dates: start: 201709

REACTIONS (1)
  - Off label use [None]
